FAERS Safety Report 5195232-1 (Version None)
Quarter: 2006Q4

REPORT INFORMATION
  Report Type: 
  Country: None (occurrence: None)
  Receive Date: 20061229
  Receipt Date: 20061222
  Transmission Date: 20070319
  Serious: Yes (Hospitalization)
  Sender: FDA-Public Use
  Company Number: CM-MERCK-0612USA03493

PATIENT
  Age: 43 Year
  Sex: Female

DRUGS (1)
  1. STROMECTOL [Suspect]
     Route: 048
     Dates: start: 20061125, end: 20061125

REACTIONS (4)
  - ARTHRALGIA [None]
  - BACK PAIN [None]
  - PYREXIA [None]
  - VERTIGO [None]
